FAERS Safety Report 4688223-8 (Version None)
Quarter: 2005Q2

REPORT INFORMATION
  Report Type: 
  Country: None (occurrence: None)
  Receive Date: 20050610
  Receipt Date: 20050601
  Transmission Date: 20051028
  Serious: Yes (Hospitalization)
  Sender: FDA-Public Use
  Company Number: DE-ABBOTT-05P-062-0302017-00

PATIENT
  Sex: Male
  Weight: 85 kg

DRUGS (6)
  1. LIPIDIL [Suspect]
     Indication: HYPERLIPIDAEMIA
     Route: 048
     Dates: start: 20050401
  2. LIPIDIL [Suspect]
     Route: 048
     Dates: start: 19990101, end: 20050401
  3. MYDOCALM [Concomitant]
     Dates: start: 20030101
  4. FLUPIRTINE MALEATE [Concomitant]
     Dates: start: 20030101
  5. AMITRIPTYLINE [Concomitant]
     Dates: start: 20040101
  6. UNSPECIFIED MEDICATIONS [Concomitant]
     Indication: MUSCULOSKELETAL PAIN

REACTIONS (3)
  - CONFUSIONAL STATE [None]
  - HAEMATEMESIS [None]
  - VERTIGO [None]
